FAERS Safety Report 15005346 (Version 1)
Quarter: 2018Q2

REPORT INFORMATION
  Report Type: Spontaneous
  Country: ES (occurrence: ES)
  Receive Date: 20180613
  Receipt Date: 20180613
  Transmission Date: 20180711
  Serious: Yes (Death, Other)
  Sender: FDA-Public Use
  Company Number: ES-BAYER-2018-110010

PATIENT
  Age: 82 Year
  Sex: Male

DRUGS (4)
  1. XOFIGO [Suspect]
     Active Substance: RADIUM RA-223 DICHLORIDE
     Indication: METASTASIS
  2. XOFIGO [Suspect]
     Active Substance: RADIUM RA-223 DICHLORIDE
     Indication: HORMONE-REFRACTORY PROSTATE CANCER
     Dosage: 1 DF, Q1MON
     Dates: start: 201602, end: 201607
  3. DENOSUMAB [Concomitant]
     Active Substance: DENOSUMAB
  4. ELIGARD [Concomitant]
     Active Substance: LEUPROLIDE ACETATE

REACTIONS (10)
  - Asthenia [None]
  - Blood alkaline phosphatase increased [None]
  - Metastases to bone [None]
  - Arthralgia [None]
  - Bedridden [None]
  - Decreased appetite [None]
  - Muscular weakness [None]
  - Pain [None]
  - Death [Fatal]
  - Prostatic specific antigen increased [None]

NARRATIVE: CASE EVENT DATE: 201602
